FAERS Safety Report 4279275-8 (Version None)
Quarter: 2004Q1

REPORT INFORMATION
  Report Type: 
  Country: None (occurrence: None)
  Receive Date: 20040122
  Receipt Date: 20040113
  Transmission Date: 20041129
  Serious: Yes (Hospitalization)
  Sender: FDA-Public Use
  Company Number: 2004002339

PATIENT
  Age: 68 Year
  Sex: Female

DRUGS (14)
  1. TAHOR (ATORVASTATIN) [Suspect]
     Indication: ILL-DEFINED DISORDER
     Dosage: ORAL
     Route: 048
     Dates: start: 20030615, end: 20031210
  2. OXAZEPAM [Suspect]
     Indication: ILL-DEFINED DISORDER
     Dosage: ORAL
     Route: 048
     Dates: start: 20030615, end: 20031210
  3. NITRENDIPINE (NITRENDIPINE) [Suspect]
     Indication: ILL-DEFINED DISORDER
     Dosage: ORAL
     Route: 048
     Dates: start: 20030615, end: 20031210
  4. CITALOPRAM (CITALOPRAM) [Suspect]
     Indication: ILL-DEFINED DISORDER
     Dosage: ORAL
     Route: 048
     Dates: start: 20030615, end: 20031210
  5. FEXOFENADINE HCL [Suspect]
     Indication: ILL-DEFINED DISORDER
     Dosage: ORAL
     Route: 048
     Dates: start: 20030615, end: 20031210
  6. CANDESARTAN CILEXETIL (CANDESARTAN CILEXETIL) [Suspect]
     Indication: ILL-DEFINED DISORDER
     Dosage: ORAL
     Route: 048
     Dates: start: 20030615, end: 20031210
  7. GLIMEPIRIDE [Concomitant]
  8. LAMALINE (CAFFEINE, PARACETAMOL, BELLADONNA EXTRACT, OPIUM TINCTURE) [Concomitant]
  9. TENOXICAM (TENOXICAM) [Concomitant]
  10. THIOCOLCHICOSIDE (THIOCOLCHICOSIDE) [Concomitant]
  11. CLONAZEPAM [Concomitant]
  12. IBUPROFEN [Concomitant]
  13. CIPROFLOXACIN [Concomitant]
  14. TROSPIUM (TROSPIUM) [Concomitant]

REACTIONS (4)
  - BILATERAL HYDRONEPHROSIS [None]
  - HAEMORRHAGE [None]
  - RENAL FAILURE ACUTE [None]
  - THROMBOCYTOPENIA [None]
